FAERS Safety Report 4475135-8 (Version None)
Quarter: 2004Q3

REPORT INFORMATION
  Report Type: 
  Country: None (occurrence: None)
  Receive Date: 20040923
  Receipt Date: 20040623
  Transmission Date: 20050211
  Serious: No
  Sender: FDA-Public Use
  Company Number: USA040670918

PATIENT
  Age: 65 Year
  Sex: Female

DRUGS (7)
  1. FORTEO [Suspect]
     Indication: OSTEOPOROSIS
     Dates: start: 20040609
  2. ZOLOFT [Concomitant]
  3. VERAPAMIL [Concomitant]
  4. PREVACID [Concomitant]
  5. ZELNORM [Concomitant]
  6. TEMAZEPAM [Concomitant]
  7. PHENERGAN [Concomitant]

REACTIONS (2)
  - INJECTION SITE ERYTHEMA [None]
  - NAUSEA [None]
